FAERS Safety Report 5951347-9 (Version None)
Quarter: 2008Q4

REPORT INFORMATION
  Report Type: 
  Country: None (occurrence: None)
  Receive Date: 20081111
  Receipt Date: 20081111
  Transmission Date: 20090506
  Serious: Yes (Death, Hospitalization, Disabling)
  Sender: FDA-Public Use
  Company Number: None

PATIENT
  Age: 70 Year
  Sex: Female
  Weight: 80 kg

DRUGS (4)
  1. HEPARIN [Suspect]
     Indication: ACUTE MYOCARDIAL INFARCTION
     Dates: start: 20081018, end: 20081019
  2. HEPARIN [Suspect]
     Indication: PERCUTANEOUS CORONARY INTERVENTION
     Dates: start: 20081018, end: 20081018
  3. ABCIXIMAB [Concomitant]
  4. ENOXAPARIN SODIUM [Concomitant]

REACTIONS (4)
  - CARDIAC FAILURE [None]
  - HEPARIN-INDUCED THROMBOCYTOPENIA [None]
  - ISCHAEMIA [None]
  - RENAL FAILURE [None]
